FAERS Safety Report 7970096-9 (Version None)
Quarter: 2011Q4

REPORT INFORMATION
  Report Type: 
  Country: None (occurrence: None)
  Receive Date: 20111212
  Receipt Date: 20111201
  Transmission Date: 20120403
  Serious: Yes (Other)
  Sender: FDA-Public Use
  Company Number: JP-AMGEN-JPNCT2010011967

PATIENT
  Age: 59 Year
  Sex: Male
  Weight: 57 kg

DRUGS (14)
  1. FLUOROURACIL [Suspect]
     Indication: COLORECTAL CANCER
     Route: 040
     Dates: start: 20100909, end: 20100911
  2. ERBITUX [Suspect]
     Indication: COLORECTAL CANCER
     Route: 041
     Dates: start: 20100701, end: 20100901
  3. ALOXI [Concomitant]
     Dosage: UNK
     Route: 042
  4. PRIMPERAN TAB [Concomitant]
     Dosage: UNK
     Route: 048
  5. FLUOROURACIL [Suspect]
     Route: 041
     Dates: start: 20100909, end: 20100911
  6. LANSOPRAZOLE [Concomitant]
     Dosage: UNK
     Route: 048
  7. LOXONIN [Concomitant]
     Dosage: UNK
     Route: 048
  8. PANITUMUMAB [Suspect]
     Indication: COLORECTAL CANCER
     Dosage: 6 MG/KG, Q2WK
     Route: 041
     Dates: start: 20100909
  9. OXINORM [Concomitant]
     Dosage: UNK
     Route: 048
  10. OXYCONTIN [Concomitant]
     Dosage: UNK
     Route: 048
  11. DECADRON [Suspect]
     Dosage: UNK
     Route: 048
  12. LEVOLEUCOVORIN CALCIUM [Concomitant]
     Indication: COLORECTAL CANCER
     Route: 041
     Dates: start: 20100909, end: 20100911
  13. IRINOTECAN HYDROCHLORIDE [Suspect]
     Indication: COLORECTAL CANCER
     Route: 041
     Dates: start: 20100909, end: 20100911
  14. PROMACTA [Concomitant]
     Dosage: UNK
     Route: 048

REACTIONS (12)
  - COLON CANCER METASTATIC [None]
  - NEOPLASM PROGRESSION [None]
  - CONSTIPATION [None]
  - MALAISE [None]
  - DECREASED APPETITE [None]
  - ABDOMINAL PAIN [None]
  - PYREXIA [None]
  - MELAENA [None]
  - NAUSEA [None]
  - PARONYCHIA [None]
  - LARGE INTESTINAL HAEMORRHAGE [None]
  - ACNE [None]
